FAERS Safety Report 8792120 (Version 2)
Quarter: 2013Q4

REPORT INFORMATION
  Report Type: Spontaneous
  Country: US (occurrence: US)
  Receive Date: 20120918
  Receipt Date: 20131101
  Transmission Date: 20140711
  Serious: Yes (Other)
  Sender: FDA-Public Use
  Company Number: US-009507513-1209USA003431

PATIENT
  Sex: Male

DRUGS (4)
  1. ISENTRESS [Suspect]
     Route: 048
  2. INTELENCE [Suspect]
     Route: 048
  3. VIREAD [Suspect]
  4. METHADONE HYDROCHLORIDE [Suspect]

REACTIONS (2)
  - Osteoporosis [Unknown]
  - Neutropenia [Unknown]
